FAERS Safety Report 7769702-3 (Version None)
Quarter: 2011Q3

REPORT INFORMATION
  Report Type: 
  Country: None (occurrence: None)
  Receive Date: 20110922
  Receipt Date: 20100803
  Transmission Date: 20111222
  Serious: No
  Sender: FDA-Public Use
  Company Number: US-ASTRAZENECA-2007UW24324

PATIENT
  Sex: Female
  Weight: 108.9 kg

DRUGS (21)
  1. TOPAMAX [Concomitant]
     Route: 048
  2. SYNTHROID [Concomitant]
     Route: 048
  3. ALBUTEROL [Concomitant]
     Dosage: 2-8 PUFFS
     Route: 055
  4. GLUCOPHAGE [Concomitant]
     Dosage: 1000- 2000 MG
     Route: 048
  5. THORAZINE [Concomitant]
     Dates: start: 19770101, end: 19890101
  6. SEROQUEL [Suspect]
     Dosage: 100-300 MG
     Route: 048
     Dates: start: 20040527
  7. GEODON [Concomitant]
     Dates: start: 20100101
  8. SINGULAIR [Concomitant]
     Route: 048
  9. DEPAKOTE [Concomitant]
  10. SEROQUEL [Suspect]
     Indication: SCHIZOAFFECTIVE DISORDER
     Route: 048
     Dates: start: 20020601, end: 20060101
  11. ZYPREXA [Concomitant]
     Indication: SCHIZOAFFECTIVE DISORDER
     Dosage: 10-20 MG
     Route: 048
     Dates: start: 20020101, end: 20060101
  12. AMBIEN [Concomitant]
     Route: 048
  13. TRICOR [Concomitant]
     Dosage: 54-67 MG
     Route: 048
  14. VALIUM [Concomitant]
     Route: 048
  15. HALDOL [Concomitant]
     Dates: start: 19770101, end: 19890101
  16. STELAZINE [Concomitant]
     Dates: start: 19770101, end: 19890101
  17. SEROQUEL [Suspect]
     Indication: DEPRESSION
     Route: 048
     Dates: start: 20020601, end: 20060101
  18. SEROQUEL [Suspect]
     Dosage: 100-300 MG
     Route: 048
     Dates: start: 20040527
  19. ADVAIR DISKUS 100/50 [Concomitant]
     Dosage: 50-500 MCG
     Route: 055
  20. WELLBUTRIN XL [Concomitant]
     Route: 048
  21. CLOZAPINE [Concomitant]
     Dates: start: 19950101

REACTIONS (2)
  - TYPE 2 DIABETES MELLITUS [None]
  - DIABETIC COMPLICATION [None]
